FAERS Safety Report 4666448-5 (Version None)
Quarter: 2005Q2

REPORT INFORMATION
  Report Type: 
  Country: None (occurrence: None)
  Receive Date: 20050517
  Receipt Date: 20050502
  Transmission Date: 20051028
  Serious: Yes (Other)
  Sender: FDA-Public Use
  Company Number: USA050495605

PATIENT
  Age: 82 Year
  Sex: Female
  Weight: 54 kg

DRUGS (13)
  1. CYMBALTA [Suspect]
     Indication: PAIN
     Dosage: 30 MG
     Dates: start: 20050331, end: 20050402
  2. HUMALOG [Concomitant]
  3. FUROSEMIDE [Concomitant]
  4. THYROID TAB [Concomitant]
  5. CREON [Concomitant]
  6. CELEBREX [Concomitant]
  7. LOTREL [Concomitant]
  8. LANTUS [Concomitant]
  9. CALCIUM GLUCONATE [Concomitant]
  10. GLUCOSAMINE [Concomitant]
  11. FOSAMAX [Concomitant]
  12. ACETYLSALICYLIC ACID SRT [Concomitant]
  13. DOCUSATE [Concomitant]

REACTIONS (12)
  - BLOOD CHLORIDE DECREASED [None]
  - BLOOD GLUCOSE INCREASED [None]
  - BLOOD UREA INCREASED [None]
  - FATIGUE [None]
  - HYPERKALAEMIA [None]
  - HYPERTENSION [None]
  - HYPONATRAEMIA [None]
  - LETHARGY [None]
  - MALAISE [None]
  - NAUSEA [None]
  - OEDEMA [None]
  - URINE OSMOLARITY DECREASED [None]
